FAERS Safety Report 11812460 (Version 1)
Quarter: 2015Q4

REPORT INFORMATION
  Report Type: Spontaneous
  Country: US (occurrence: US)
  Receive Date: 20151208
  Receipt Date: 20151208
  Transmission Date: 20160305
  Serious: Yes (Hospitalization)
  Sender: FDA-Public Use
  Company Number: US-ACTELION-A-NJ2015-128028

PATIENT
  Age: 89 Year
  Sex: Female

DRUGS (12)
  1. FERROUS SULFATE [Concomitant]
     Active Substance: FERROUS SULFATE\FERROUS SULFATE, DRIED
     Dosage: 325 UNK, UNK
     Dates: start: 20110323
  2. POTASSIUM CHLORIDE. [Concomitant]
     Active Substance: POTASSIUM CHLORIDE
     Dosage: 20 MEQ, UNK
     Route: 048
     Dates: start: 20150924
  3. LIPITOR [Concomitant]
     Active Substance: ATORVASTATIN CALCIUM
     Dosage: 10 MG, UNK
     Dates: start: 20150210
  4. METOPROLOL [Concomitant]
     Active Substance: METOPROLOL
     Dosage: 50 MG, QPM
     Dates: start: 20140805
  5. ANASTROZOL [Concomitant]
     Active Substance: ANASTROZOLE
     Dosage: 1 MG, UNK
     Route: 048
     Dates: start: 20150407
  6. TRACLEER [Suspect]
     Active Substance: BOSENTAN
     Dosage: 62.5 MG, BID
     Route: 048
     Dates: start: 20151117
  7. COUMADIN [Concomitant]
     Active Substance: WARFARIN SODIUM
     Dosage: 5 MG, 1 - 1-1/2 PRN
     Dates: start: 20150512
  8. SILDENAFIL CITRATE. [Concomitant]
     Active Substance: SILDENAFIL CITRATE
     Dosage: 20 MG, TID
     Route: 048
     Dates: start: 20150130
  9. TRACLEER [Suspect]
     Active Substance: BOSENTAN
     Indication: PULMONARY ARTERIAL HYPERTENSION
     Dosage: 125 MG, BID
     Route: 048
     Dates: start: 20071008, end: 20151114
  10. VOLTAREN [Concomitant]
     Active Substance: DICLOFENAC SODIUM
     Dosage: 2 GM, BID
     Dates: start: 20140423
  11. VITAMIN C [Concomitant]
     Active Substance: ASCORBIC ACID
     Dosage: 1000 MG, QD
     Dates: start: 20130403
  12. SPIRONOLACTONE. [Concomitant]
     Active Substance: SPIRONOLACTONE
     Dosage: 25 MG, BID
     Route: 048
     Dates: start: 20150331

REACTIONS (14)
  - Cardiac failure [Recovering/Resolving]
  - Asthenia [Recovering/Resolving]
  - Generalised oedema [Recovering/Resolving]
  - Fluid overload [Recovering/Resolving]
  - Ascites [Recovering/Resolving]
  - Hypotension [Recovering/Resolving]
  - Dyspnoea [Recovering/Resolving]
  - Renal impairment [Recovering/Resolving]
  - Dialysis [Recovering/Resolving]
  - Pneumonia [Recovering/Resolving]
  - Rales [Recovering/Resolving]
  - Peripheral swelling [Recovering/Resolving]
  - Oedema [Recovering/Resolving]
  - Dizziness [Recovering/Resolving]
